FAERS Safety Report 9686293 (Version 2)
Quarter: 2013Q4

REPORT INFORMATION
  Report Type: Spontaneous
  Country: CH (occurrence: CH)
  Receive Date: 20131113
  Receipt Date: 20131209
  Transmission Date: 20140711
  Serious: Yes (Other)
  Sender: FDA-Public Use
  Company Number: CH-MERCK-1311CHE004202

PATIENT
  Age: 48 Year
  Sex: Female

DRUGS (3)
  1. JANUVIA [Suspect]
     Indication: TYPE 2 DIABETES MELLITUS
     Dosage: 100 MG, QD
     Route: 048
     Dates: start: 201310, end: 201310
  2. JANUVIA [Suspect]
     Dosage: 50 MG, BID
     Dates: start: 201310
  3. METFORMIN [Suspect]
     Indication: TYPE 2 DIABETES MELLITUS
     Dosage: 1000 MG, QD
     Route: 048

REACTIONS (4)
  - Syncope [Recovered/Resolved]
  - Hypoglycaemia [Recovered/Resolved]
  - Gastrointestinal disorder [Unknown]
  - Inappropriate schedule of drug administration [Unknown]
